FAERS Safety Report 16833276 (Version 1)
Quarter: 2019Q3

REPORT INFORMATION
  Report Type: Spontaneous
  Country: SE (occurrence: SE)
  Receive Date: 20190920
  Receipt Date: 20190920
  Transmission Date: 20191005
  Serious: Yes (Hospitalization, Other)
  Sender: FDA-Public Use
  Company Number: SE-BAUSCH-BL-2019-025874

PATIENT
  Sex: Female
  Weight: 53 kg

DRUGS (3)
  1. OPDIVO [Suspect]
     Active Substance: NIVOLUMAB
     Indication: UVEAL MELANOMA
     Route: 042
     Dates: start: 20190409, end: 20190627
  2. YERVOY [Suspect]
     Active Substance: IPILIMUMAB
     Indication: UVEAL MELANOMA
     Route: 042
     Dates: start: 20190409, end: 20190627
  3. PREDNISOLON (PREDNISOLONE) [Suspect]
     Active Substance: PREDNISOLONE
     Indication: PRODUCT USED FOR UNKNOWN INDICATION
     Route: 065

REACTIONS (7)
  - Hypothyroidism [Unknown]
  - Hepatitis [Recovering/Resolving]
  - Rash [Unknown]
  - Diabetes mellitus [Recovering/Resolving]
  - Hyperthyroidism [Recovered/Resolved]
  - Colitis [Recovered/Resolved]
  - Pyrexia [Unknown]

NARRATIVE: CASE EVENT DATE: 20190418
